FAERS Safety Report 6102916-7 (Version None)
Quarter: 2009Q1

REPORT INFORMATION
  Report Type: 
  Country: None (occurrence: None)
  Receive Date: 20090303
  Receipt Date: 20090303
  Transmission Date: 20090719
  Serious: No
  Sender: FDA-Public Use
  Company Number: None

PATIENT
  Sex: Female
  Weight: 65.7716 kg

DRUGS (1)
  1. CLINDAMYCIN HCL [Suspect]
     Indication: ORAL INFECTION
     Dosage: 2 CAPS 4 TIMES DAY PO
     Route: 048
     Dates: start: 20090226, end: 20090227

REACTIONS (2)
  - PYREXIA [None]
  - VOMITING [None]
